FAERS Safety Report 9240314 (Version 2)
Quarter: 2013Q2

REPORT INFORMATION
  Report Type: Spontaneous
  Country: FI (occurrence: None)
  Receive Date: 20130417
  Receipt Date: 20130510
  Transmission Date: 20140414
  Serious: Yes (Hospitalization)
  Sender: FDA-Public Use
  Company Number: 1674546

PATIENT
  Age: 69 Year
  Sex: Male

DRUGS (18)
  1. (OXALIPLATIN) [Suspect]
     Indication: RECTAL CANCER
     Dosage: CYCLICAL
  2. (OXALIPLATIN) [Suspect]
     Indication: METASTASES TO LIVER
     Dosage: CYCLICAL
  3. CAPECITABINE [Suspect]
     Indication: RECTAL CANCER
     Dosage: CYCLICAL
  4. CAPECITABINE [Suspect]
     Indication: METASTASES TO LIVER
     Dosage: CYCLICAL
  5. BEVACIZUMAB [Suspect]
     Indication: RECTAL CANCER
     Dosage: CYCLICAL
  6. BEVACIZUMAB [Suspect]
     Indication: METASTASES TO LIVER
     Dosage: CYCLICAL
  7. CARVEDILOL [Suspect]
     Indication: HYPERTENSION
  8. LERCANIDIPINE [Suspect]
     Indication: HYPERTENSION
  9. TAMSULOSIN [Suspect]
     Indication: PROSTATOMEGALY
  10. PANTOPRAZOL [Suspect]
     Indication: PRODUCT USED FOR UNKNOWN INDICATION
  11. DALTEPARIN [Suspect]
     Indication: PRODUCT USED FOR UNKNOWN INDICATION
  12. (OXYCODONE) [Suspect]
     Indication: PRODUCT USED FOR UNKNOWN INDICATION
  13. TRAMADOL [Suspect]
     Indication: PRODUCT USED FOR UNKNOWN INDICATION
  14. LOSARTAN [Suspect]
     Indication: HYPERTENSION
  15. SODIUM PICOSULFATE [Suspect]
     Indication: PRODUCT USED FOR UNKNOWN INDICATION
  16. CEFTRIAXONE [Suspect]
     Indication: PRODUCT USED FOR UNKNOWN INDICATION
  17. ONDANSETRON [Suspect]
     Indication: PRODUCT USED FOR UNKNOWN INDICATION
  18. OXAZEPAM [Suspect]
     Indication: PRODUCT USED FOR UNKNOWN INDICATION

REACTIONS (1)
  - Leukocytoclastic vasculitis [None]
